FAERS Safety Report 6327456-1 (Version None)
Quarter: 2009Q3

REPORT INFORMATION
  Report Type: 
  Country: None (occurrence: None)
  Receive Date: 20090825
  Receipt Date: 20090819
  Transmission Date: 20100115
  Serious: Yes (Other)
  Sender: FDA-Public Use
  Company Number: CN-JNJFOC-20090806495

PATIENT
  Age: 26 Month
  Sex: Male
  Weight: 14 kg

DRUGS (1)
  1. TYLENOL (CAPLET) [Suspect]
     Indication: RHINORRHOEA
     Route: 048

REACTIONS (3)
  - ACCIDENTAL OVERDOSE [None]
  - LIVER FUNCTION TEST ABNORMAL [None]
  - RASH [None]
